FAERS Safety Report 16358683 (Version 3)
Quarter: 2019Q2

REPORT INFORMATION
  Report Type: Spontaneous
  Country: US (occurrence: US)
  Receive Date: 20190527
  Receipt Date: 20190531
  Transmission Date: 20190711
  Serious: Yes (Hospitalization)
  Sender: FDA-Public Use
  Company Number: US-ALKERMES INC.-ALK-2019-002813

PATIENT
  Age: 60 Year
  Sex: Male

DRUGS (1)
  1. VIVITROL [Suspect]
     Active Substance: NALTREXONE
     Indication: ALCOHOLISM
     Dosage: 380 MG, QMO
     Route: 030
     Dates: start: 201811, end: 20190516

REACTIONS (8)
  - Wheezing [Unknown]
  - Eosinophilic pneumonia acute [Unknown]
  - Fatigue [Unknown]
  - White blood cell count increased [Unknown]
  - Asthenia [Unknown]
  - Pericarditis [Unknown]
  - Electrocardiogram abnormal [Unknown]
  - Dyspnoea [Unknown]

NARRATIVE: CASE EVENT DATE: 20190519
